FAERS Safety Report 9223280 (Version 1)
Quarter: 2013Q2

REPORT INFORMATION
  Report Type: Spontaneous
  Country: GB (occurrence: GB)
  Receive Date: 20130410
  Receipt Date: 20130410
  Transmission Date: 20140414
  Serious: Yes (Death, Hospitalization)
  Sender: FDA-Public Use
  Company Number: GB-BAXTER-2013BAX012747

PATIENT
  Age: 50 Year
  Sex: Female

DRUGS (3)
  1. CYCLOPHOSPHAMIDE INJECTION 1G [Suspect]
     Indication: LARGE GRANULAR LYMPHOCYTOSIS
  2. FLUDARABINE [Suspect]
     Indication: LARGE GRANULAR LYMPHOCYTOSIS
  3. PREDNISOLONE [Concomitant]
     Indication: LARGE GRANULAR LYMPHOCYTOSIS

REACTIONS (2)
  - Neutropenic sepsis [Unknown]
  - Blast cell crisis [Fatal]
